FAERS Safety Report 24424416 (Version 1)
Quarter: 2024Q4

REPORT INFORMATION
  Report Type: Spontaneous
  Country: US (occurrence: US)
  Receive Date: 20241010
  Receipt Date: 20241010
  Transmission Date: 20250114
  Serious: Yes (Hospitalization, Other)
  Sender: DR REDDYS
  Company Number: None

PATIENT
  Age: 31 Year
  Sex: Male

DRUGS (4)
  1. OLANZAPINE [Suspect]
     Active Substance: OLANZAPINE
     Indication: Agitation
     Dosage: PRN
  2. QUETIAPINE [Suspect]
     Active Substance: QUETIAPINE
     Indication: Agitation
     Dosage: PRN
  3. HALOPERIDOL [Suspect]
     Active Substance: HALOPERIDOL
     Indication: Agitation
     Dosage: PRN
     Route: 051
  4. HALOPERIDOL [Suspect]
     Active Substance: HALOPERIDOL
     Dosage: RECEIVING ESCALATING DOSAGE
     Route: 051

REACTIONS (2)
  - Respiratory alkalosis [Recovering/Resolving]
  - Neuroleptic malignant syndrome [Recovering/Resolving]
